FAERS Safety Report 8957730 (Version 1)
Quarter: 2012Q4

REPORT INFORMATION
  Report Type: 
  Country: US (occurrence: US)
  Receive Date: 20121211
  Receipt Date: 20121211
  Transmission Date: 20130627
  Serious: Yes (Hospitalization)
  Sender: FDA-Public Use
  Company Number: US-JNJFOC-20121114590

PATIENT
  Age: 68 Year
  Sex: Female

DRUGS (2)
  1. REMICADE [Suspect]
     Indication: RHEUMATOID ARTHRITIS
     Dosage: second dose
     Route: 042
     Dates: start: 20121121
  2. REMICADE [Suspect]
     Indication: RHEUMATOID ARTHRITIS
     Dosage: first dose
     Route: 042
     Dates: start: 20121108

REACTIONS (6)
  - Hepatotoxicity [Not Recovered/Not Resolved]
  - Fall [Unknown]
  - Urosepsis [Unknown]
  - Myocardial infarction [Unknown]
  - Brain natriuretic peptide increased [Recovering/Resolving]
  - Confusional state [Unknown]
